FAERS Safety Report 7112003-7 (Version None)
Quarter: 2010Q4

REPORT INFORMATION
  Report Type: 
  Country: None (occurrence: None)
  Receive Date: 20101119
  Receipt Date: 20101111
  Transmission Date: 20110411
  Serious: No
  Sender: FDA-Public Use
  Company Number: US-PFIZER INC-2010146497

PATIENT
  Sex: Male
  Weight: 121 kg

DRUGS (6)
  1. CHANTIX [Suspect]
     Indication: SMOKING CESSATION THERAPY
     Dosage: 0.5 MG, 1X/DAY
     Route: 048
     Dates: start: 20100425, end: 20100715
  2. EFFEXOR [Concomitant]
     Indication: ANXIETY
     Dosage: UNK
  3. LISINOPRIL [Concomitant]
     Indication: HYPERTENSION
     Dosage: UNK
  4. ATENOLOL [Concomitant]
     Indication: HYPERTENSION
     Dosage: UNK
  5. SIMVASTATIN [Concomitant]
     Indication: HYPERTENSION
     Dosage: UNK
  6. CHLORTHALIDONE [Concomitant]
     Indication: HYPERTENSION
     Dosage: UNK

REACTIONS (5)
  - AGGRESSION [None]
  - ANGER [None]
  - FEELING ABNORMAL [None]
  - INSOMNIA [None]
  - NIGHTMARE [None]
